FAERS Safety Report 7400580-8 (Version None)
Quarter: 2011Q2

REPORT INFORMATION
  Report Type: 
  Country: None (occurrence: None)
  Receive Date: 20110407
  Receipt Date: 20110331
  Transmission Date: 20111010
  Serious: Yes (Other)
  Sender: FDA-Public Use
  Company Number: GB-PFIZER INC-2011060361

PATIENT
  Age: 47 Year
  Sex: Male

DRUGS (3)
  1. THALIDOMIDE [Concomitant]
     Indication: MULTIPLE MYELOMA
     Dosage: 100 MG
  2. FENTANYL [Suspect]
     Indication: NEURALGIA
     Dosage: 250 UG/H
  3. PREGABALIN [Suspect]
     Indication: NEURALGIA
     Dosage: 300 MG, 2X/DAY

REACTIONS (5)
  - DISTURBANCE IN ATTENTION [None]
  - SOMNOLENCE [None]
  - HALLUCINATION [None]
  - PAIN [None]
  - MYOCLONUS [None]
